FAERS Safety Report 6384180-7 (Version None)
Quarter: 2009Q4

REPORT INFORMATION
  Report Type: 
  Country: None (occurrence: None)
  Receive Date: 20091001
  Receipt Date: 20090925
  Transmission Date: 20100525
  Serious: Yes (Hospitalization, Other)
  Sender: FDA-Public Use
  Company Number: A0791204A

PATIENT
  Sex: Female

DRUGS (9)
  1. TYKERB [Suspect]
     Indication: BREAST CANCER
     Dosage: 5TAB SEE DOSAGE TEXT
     Route: 048
     Dates: start: 20090501
  2. XELODA [Concomitant]
  3. LISINOPRIL [Concomitant]
  4. COREG [Concomitant]
  5. ADVAIR DISKUS 100/50 [Concomitant]
  6. SINGULAIR [Concomitant]
  7. NEURONTIN [Concomitant]
  8. TRAMADOL HCL [Concomitant]
  9. EFFEXOR [Concomitant]

REACTIONS (13)
  - CARDIAC FAILURE [None]
  - DECREASED APPETITE [None]
  - DRUG INEFFECTIVE [None]
  - EYE DISORDER [None]
  - INFLUENZA [None]
  - LIP SWELLING [None]
  - PAIN [None]
  - PRURITUS [None]
  - RASH [None]
  - RASH PRURITIC [None]
  - SENSITIVITY OF TEETH [None]
  - URTICARIA [None]
  - WEIGHT DECREASED [None]
